FAERS Safety Report 14679926 (Version 1)
Quarter: 2018Q1

REPORT INFORMATION
  Report Type: Spontaneous
  Country: US (occurrence: US)
  Receive Date: 20180326
  Receipt Date: 20180326
  Transmission Date: 20180509
  Serious: Yes (Other)
  Sender: FDA-Public Use
  Company Number: US-STANDARD HOMEOPATHIC COMPANY-2044515

PATIENT
  Age: 6 Month
  Sex: Male

DRUGS (7)
  1. BABY TEETHING (HYLAND HOMEOPATHIC) [Suspect]
     Active Substance: HOMEOPATHICS
     Indication: SLEEP DISORDER
     Route: 048
     Dates: start: 20180306, end: 20180306
  2. BABY TEETHING (HYLAND HOMEOPATHIC) [Suspect]
     Active Substance: HOMEOPATHICS
     Indication: INSOMNIA
     Route: 048
     Dates: start: 20180306, end: 20180306
  3. BABY TEETHING (HYLAND HOMEOPATHIC) [Suspect]
     Active Substance: HOMEOPATHICS
     Indication: TEETHING
     Route: 048
     Dates: start: 20180306, end: 20180306
  4. BABY TEETHING (HYLAND HOMEOPATHIC) [Suspect]
     Active Substance: HOMEOPATHICS
     Indication: IRRITABILITY
     Route: 048
     Dates: start: 20180306, end: 20180306
  5. BABY TEETHING (HYLAND HOMEOPATHIC) [Suspect]
     Active Substance: HOMEOPATHICS
     Indication: GINGIVAL ERYTHEMA
     Route: 048
     Dates: start: 20180306, end: 20180306
  6. BABY TEETHING (HYLAND HOMEOPATHIC) [Suspect]
     Active Substance: HOMEOPATHICS
     Indication: PAIN
     Route: 048
     Dates: start: 20180306, end: 20180306
  7. BABY TEETHING (HYLAND HOMEOPATHIC) [Suspect]
     Active Substance: HOMEOPATHICS
     Indication: RESTLESSNESS
     Route: 048
     Dates: start: 20180306, end: 20180306

REACTIONS (6)
  - Pyrexia [None]
  - Decreased appetite [None]
  - Sepsis [None]
  - Vomiting [None]
  - Insomnia [None]
  - Toxicity to various agents [None]

NARRATIVE: CASE EVENT DATE: 20180306
